FAERS Safety Report 4560714-X (Version None)
Quarter: 2005Q1

REPORT INFORMATION
  Report Type: 
  Country: None (occurrence: None)
  Receive Date: 20050126
  Receipt Date: 20050114
  Transmission Date: 20050727
  Serious: Yes (Hospitalization, Disabling)
  Sender: FDA-Public Use
  Company Number: US-JNJFOC-20040704315

PATIENT
  Sex: Female
  Weight: 83.92 kg

DRUGS (6)
  1. INFLIXIMAB [Suspect]
     Route: 042
  2. INFLIXIMAB [Suspect]
     Indication: CROHN'S DISEASE
     Route: 042
  3. ANTIBIOTICS [Concomitant]
     Indication: CROHN'S DISEASE
  4. NARCOTIC ANALGESICS [Concomitant]
     Indication: CROHN'S DISEASE
  5. ANTIDEPRESSANTS [Concomitant]
     Indication: CROHN'S DISEASE
  6. PREDNISONE [Concomitant]
     Indication: CROHN'S DISEASE

REACTIONS (2)
  - ABSCESS [None]
  - LUPUS-LIKE SYNDROME [None]
